FAERS Safety Report 9557928 (Version 4)
Quarter: 2014Q1

REPORT INFORMATION
  Report Type: Spontaneous
  Country: US (occurrence: US)
  Receive Date: 20130926
  Receipt Date: 20140220
  Transmission Date: 20141002
  Serious: Yes (Death, Hospitalization, Other)
  Sender: FDA-Public Use
  Company Number: US-BRISTOL-MYERS SQUIBB COMPANY-19437722

PATIENT
  Age: 55 Year
  Sex: Male
  Weight: 95.24 kg

DRUGS (28)
  1. BYETTA [Suspect]
     Indication: TYPE 2 DIABETES MELLITUS
     Route: 058
     Dates: start: 200905, end: 201010
  2. MULTIVITAMINS [Concomitant]
  3. ALBUTEROL [Concomitant]
  4. NOVOLOG [Concomitant]
  5. LANTUS [Concomitant]
  6. IMDUR [Concomitant]
     Route: 048
  7. COZAAR [Concomitant]
     Route: 048
  8. REGLAN [Concomitant]
  9. TOPROL [Concomitant]
  10. ZOFRAN [Concomitant]
  11. PROTONIX [Concomitant]
  12. ACTOS [Concomitant]
     Dosage: TAB
     Route: 048
  13. ASPIRIN [Concomitant]
     Route: 048
  14. FISH OIL [Concomitant]
     Route: 048
  15. CHONDROITIN SULFATE + GLUCOSAMINE [Concomitant]
     Route: 048
  16. GLYBURIDE [Concomitant]
     Dosage: TAB
     Route: 048
  17. LIPITOR [Concomitant]
     Route: 048
  18. PLAVIX [Concomitant]
     Dosage: TAB
     Route: 048
  19. SYNTHROID [Concomitant]
     Route: 048
  20. TOPROL XL [Concomitant]
     Dosage: TAB
     Route: 048
  21. TRICOR [Concomitant]
     Route: 048
  22. ZETIA [Concomitant]
     Dosage: TAB
     Route: 048
  23. SINEMET [Concomitant]
  24. OMEGA [Concomitant]
  25. TYLENOL [Concomitant]
  26. GLYBURIDE [Concomitant]
  27. METFORMIN [Concomitant]
  28. GLUCOSAMINE [Concomitant]

REACTIONS (3)
  - Adenocarcinoma pancreas [Fatal]
  - Bile duct adenocarcinoma [Unknown]
  - Pancreatitis [Unknown]
